FAERS Safety Report 5999760-8 (Version None)
Quarter: 2008Q4

REPORT INFORMATION
  Report Type: 
  Country: None (occurrence: None)
  Receive Date: 20081215
  Receipt Date: 20081205
  Transmission Date: 20090506
  Serious: Yes (Disabling)
  Sender: FDA-Public Use
  Company Number: FR-ELI_LILLY_AND_COMPANY-FR200812001735

PATIENT
  Sex: Male
  Weight: 72 kg

DRUGS (11)
  1. DROTRECOGIN ALFA (ACTIVATED) [Suspect]
     Indication: SEPTIC SHOCK
     Route: 042
     Dates: start: 20080720
  2. KARDEGIC /00002703/ [Concomitant]
     Dates: start: 20080719
  3. NORADRENALINE [Concomitant]
     Dates: start: 20080719, end: 20080721
  4. HYPNOVEL [Concomitant]
     Dates: start: 20080718, end: 20080723
  5. SUFENTA PRESERVATIVE FREE [Concomitant]
     Dates: start: 20080717, end: 20080725
  6. UMULINE [Concomitant]
     Dates: start: 20080708
  7. HYDROCORTISONE [Concomitant]
     Dosage: UNK, UNK
     Dates: start: 20080720, end: 20080725
  8. LASIX [Concomitant]
     Dates: start: 20080719, end: 20080722
  9. TIENAM [Concomitant]
     Dates: start: 20080720, end: 20080726
  10. TRIFLUCAN [Concomitant]
     Dates: start: 20080713, end: 20080726
  11. ZYVOXID [Concomitant]
     Dates: start: 20080720, end: 20080726

REACTIONS (1)
  - COMA [None]
